FAERS Safety Report 6897563-3 (Version None)
Quarter: 2010Q3

REPORT INFORMATION
  Report Type: 
  Country: None (occurrence: None)
  Receive Date: 20100802
  Receipt Date: 20070531
  Transmission Date: 20110219
  Serious: Yes (Other)
  Sender: FDA-Public Use
  Company Number: US-PFIZER INC-2007045840

PATIENT
  Sex: Female

DRUGS (1)
  1. LYRICA [Suspect]

REACTIONS (8)
  - ANXIETY [None]
  - ARTHRITIS [None]
  - CONFUSIONAL STATE [None]
  - MEMORY IMPAIRMENT [None]
  - OROPHARYNGEAL PAIN [None]
  - PALPITATIONS [None]
  - VISION BLURRED [None]
  - WEIGHT INCREASED [None]
